FAERS Safety Report 24429532 (Version 1)
Quarter: 2024Q4

REPORT INFORMATION
  Report Type: Spontaneous
  Country: US (occurrence: US)
  Receive Date: 20241012
  Receipt Date: 20241012
  Transmission Date: 20250114
  Serious: No
  Sender: CELLTRION
  Company Number: US-CELLTRION INC.-2024US014349

PATIENT

DRUGS (1)
  1. INFLECTRA [Suspect]
     Active Substance: INFLIXIMAB-DYYB
     Indication: Product used for unknown indication

REACTIONS (6)
  - Gastrointestinal sounds abnormal [Unknown]
  - Rash [Unknown]
  - Nausea [Unknown]
  - Abdominal pain [Unknown]
  - Arthralgia [Unknown]
  - Treatment delayed [Unknown]
